FAERS Safety Report 15788188 (Version 1)
Quarter: 2019Q1

REPORT INFORMATION
  Report Type: Spontaneous
  Country: IT (occurrence: IT)
  Receive Date: 20190104
  Receipt Date: 20190104
  Transmission Date: 20190417
  Serious: Yes (Hospitalization, Other)
  Sender: FDA-Public Use
  Company Number: IT-SUN PHARMACEUTICAL INDUSTRIES LTD-2018RR-195137

PATIENT
  Age: 67 Year
  Sex: Male

DRUGS (1)
  1. METFORMIN [Suspect]
     Active Substance: METFORMIN HYDROCHLORIDE
     Indication: TYPE 2 DIABETES MELLITUS
     Dosage: UNK ()
     Route: 065

REACTIONS (5)
  - Shock [Recovered/Resolved]
  - Vomiting [Unknown]
  - Acute kidney injury [Recovered/Resolved]
  - Urine albumin/creatinine ratio abnormal [Recovered/Resolved]
  - Lactic acidosis [Recovered/Resolved]
